FAERS Safety Report 14412205 (Version 9)
Quarter: 2019Q1

REPORT INFORMATION
  Report Type: Report from Study
  Country: ES (occurrence: ES)
  Receive Date: 20180119
  Receipt Date: 20190129
  Transmission Date: 20190417
  Serious: Yes (Death, Life-Threatening)
  Sender: FDA-Public Use
  Company Number: PHHO2018ES001112

PATIENT
  Age: 69 Year
  Sex: Female
  Weight: 81 kg

DRUGS (14)
  1. LEE011 [Suspect]
     Active Substance: RIBOCICLIB
     Indication: BREAST CANCER
     Dosage: 600 MG, OT
     Route: 048
     Dates: start: 20171205, end: 20180115
  2. LETROZOLE. [Suspect]
     Active Substance: LETROZOLE
     Indication: BREAST CANCER
     Dosage: 2.5 MG, QD
     Route: 048
     Dates: start: 20171205
  3. ABSTRAL [Concomitant]
     Active Substance: FENTANYL CITRATE
     Indication: METASTASES TO BONE
     Dosage: 300 MG, QD
     Route: 048
  4. VENLAFAXIN [Concomitant]
     Active Substance: VENLAFAXINE HYDROCHLORIDE
     Indication: DEPRESSION
     Dosage: 225 MG, QD
     Route: 048
     Dates: end: 20180115
  5. LORAZEPAM. [Concomitant]
     Active Substance: LORAZEPAM
     Indication: DEPRESSION
     Dosage: 1 MG, QD
     Route: 048
  6. LAMOTRIGINA [Concomitant]
     Active Substance: LAMOTRIGINE
     Indication: DEPRESSION
     Dosage: 100 MG, QD
     Route: 048
     Dates: end: 20180114
  7. CALODIS [Concomitant]
     Indication: METASTASES TO BONE
     Dosage: 1000 MG, QD
     Route: 048
     Dates: end: 20180115
  8. DEPRAX (TRAZODONE HYDROCHLORIDE) [Concomitant]
     Active Substance: TRAZODONE HYDROCHLORIDE
     Indication: DEPRESSION
     Dosage: 100 MG, QD
     Route: 048
     Dates: end: 20180115
  9. METFORMINE [Concomitant]
     Active Substance: METFORMIN HYDROCHLORIDE
     Indication: DIABETES MELLITUS
     Dosage: 850 MG, QD
     Route: 048
     Dates: start: 20161021, end: 20180115
  10. OXYNORM [Concomitant]
     Active Substance: OXYCODONE HYDROCHLORIDE
     Indication: METASTASES TO BONE
     Dosage: UNK
     Route: 048
     Dates: end: 20080115
  11. EUTIROX [Concomitant]
     Active Substance: LEVOTHYROXINE SODIUM
     Indication: HYPOTHYROIDISM
     Dosage: 0.75 UG, QD
     Route: 048
     Dates: start: 20090114
  12. ZOLEDRONIC ACID [Concomitant]
     Active Substance: ZOLEDRONIC ACID
     Indication: METASTASES TO BONE
     Dosage: 4 MG, QMO
     Route: 040
     Dates: start: 20171204, end: 20180104
  13. IBUPROFEN. [Concomitant]
     Active Substance: IBUPROFEN
     Indication: CANCER PAIN
     Dosage: 600 MG, QD
     Route: 048
     Dates: end: 20180115
  14. LETROZOLE. [Suspect]
     Active Substance: LETROZOLE
     Dosage: 2.5 MG, QD
     Route: 048
     Dates: start: 20180118

REACTIONS (1)
  - Lung infiltration [Fatal]

NARRATIVE: CASE EVENT DATE: 20180116
